FAERS Safety Report 6414680-2 (Version None)
Quarter: 2009Q4

REPORT INFORMATION
  Report Type: 
  Country: None (occurrence: None)
  Receive Date: 20091026
  Receipt Date: 20091021
  Transmission Date: 20100525
  Serious: Yes (Death, Hospitalization)
  Sender: FDA-Public Use
  Company Number: JP-GILEAD-2009-0024995

PATIENT
  Sex: Female

DRUGS (8)
  1. TRUVADA [Suspect]
     Indication: HIV INFECTION
     Route: 048
     Dates: start: 20060523, end: 20080424
  2. NORVIR [Suspect]
     Indication: HIV INFECTION
     Route: 048
     Dates: start: 20060328, end: 20081118
  3. REYATAZ [Suspect]
     Indication: HIV INFECTION
     Dates: start: 20060328, end: 20081118
  4. EPIVIR [Suspect]
     Indication: HIV INFECTION
     Dates: start: 20080425, end: 20081118
  5. ZERIT [Suspect]
     Indication: HIV INFECTION
     Route: 048
     Dates: start: 20080425, end: 20081118
  6. ALOSITOL [Concomitant]
     Indication: HIV INFECTION
     Dates: start: 20060401, end: 20081118
  7. GASTER D [Concomitant]
     Dates: start: 20060509, end: 20081118
  8. MELVALOTIN [Concomitant]
     Dates: start: 20060515, end: 20081118

REACTIONS (2)
  - CERVIX CARCINOMA [None]
  - RENAL IMPAIRMENT [None]
